FAERS Safety Report 7373808-0 (Version None)
Quarter: 2011Q1

REPORT INFORMATION
  Report Type: 
  Country: None (occurrence: None)
  Receive Date: 20110325
  Receipt Date: 20110317
  Transmission Date: 20110831
  Serious: No
  Sender: FDA-Public Use
  Company Number: US-PFIZER INC-2011059489

PATIENT
  Sex: Male

DRUGS (6)
  1. POTASSIUM [Concomitant]
     Dosage: UNK
  2. ADVIL LIQUI-GELS [Concomitant]
     Dosage: UNK
  3. LYRICA [Suspect]
     Dosage: 150 MG, ONCE DAILY, QHS
  4. ALTACE [Concomitant]
     Dosage: UNK
  5. LYRICA [Suspect]
     Dosage: 150MG QHS+ 75 MG QD
  6. ACETAMINOPHEN [Concomitant]
     Dosage: UNK

REACTIONS (3)
  - SKIN BURNING SENSATION [None]
  - PRURITUS [None]
  - SOMNOLENCE [None]
